FAERS Safety Report 8485917-3 (Version None)
Quarter: 2012Q3

REPORT INFORMATION
  Report Type: 
  Country: None (occurrence: None)
  Receive Date: 20120703
  Receipt Date: 20120625
  Transmission Date: 20120928
  Serious: Yes (Hospitalization, Other)
  Sender: FDA-Public Use
  Company Number: JP-ABBOTT-12P-087-0928396-00

PATIENT
  Sex: Female

DRUGS (11)
  1. PREDNISOLONE [Concomitant]
     Indication: PROPHYLAXIS
     Route: 048
     Dates: start: 20110208, end: 20120417
  2. HUMIRA [Suspect]
     Indication: PUSTULAR PSORIASIS
     Dates: start: 20120222, end: 20120404
  3. ISONIAZID [Concomitant]
     Indication: ANTIBIOTIC PROPHYLAXIS
     Route: 048
     Dates: start: 20110726, end: 20120412
  4. CLOSTRIDIUM BUTYRICUM [Concomitant]
     Indication: PROPHYLAXIS AGAINST DIARRHOEA
     Dosage: 3 DOSAGE FORMS DAILY
     Route: 048
     Dates: start: 20110726, end: 20120412
  5. HUMIRA [Suspect]
     Indication: PSORIATIC ARTHROPATHY
     Route: 058
     Dates: start: 20120208, end: 20120208
  6. FAMOTIDINE [Concomitant]
     Indication: PROPHYLAXIS AGAINST GASTROINTESTINAL ULCER
     Dosage: DAILY DOSE 20 MG
     Route: 048
     Dates: start: 20110208, end: 20120417
  7. PREDNISOLONE [Concomitant]
     Indication: ANAPHYLACTIC REACTION
  8. LEVOCETIRIZINE HYDROCHLORIDE [Concomitant]
     Indication: PROPHYLAXIS
  9. SULFAMETHOXAZOLE AND TRIMETHOPRIM [Concomitant]
     Indication: PROPHYLAXIS
     Dosage: 0.5 DOSAGE FORMS DAILY
     Route: 048
     Dates: start: 20120314, end: 20120423
  10. SULFAMETHOXAZOLE AND TRIMETHOPRIM [Concomitant]
     Indication: PNEUMOCYSTIS JIROVECI PNEUMONIA
  11. LEVOCETIRIZINE HYDROCHLORIDE [Concomitant]
     Indication: URTICARIA
     Route: 048
     Dates: start: 20120201

REACTIONS (4)
  - LATEX ALLERGY [None]
  - ANAPHYLACTIC REACTION [None]
  - LOSS OF CONSCIOUSNESS [None]
  - HEARING IMPAIRED [None]
